FAERS Safety Report 6097928-6 (Version None)
Quarter: 2009Q1

REPORT INFORMATION
  Report Type: 
  Country: None (occurrence: None)
  Receive Date: 20090227
  Receipt Date: 20090217
  Transmission Date: 20090719
  Serious: Yes (Other)
  Sender: FDA-Public Use
  Company Number: MY-ELI_LILLY_AND_COMPANY-MY200902006283

PATIENT
  Age: 60 Year
  Sex: Female

DRUGS (1)
  1. HUMULIN R [Suspect]
     Indication: TYPE 2 DIABETES MELLITUS
     Dosage: 36 U, DAILY (1/D)
     Route: 058
     Dates: start: 20080401

REACTIONS (3)
  - CHEST PAIN [None]
  - DYSPNOEA [None]
  - OEDEMA PERIPHERAL [None]
